FAERS Safety Report 8383942-4 (Version None)
Quarter: 2012Q2

REPORT INFORMATION
  Report Type: 
  Country: None (occurrence: None)
  Receive Date: 20120524
  Receipt Date: 20120514
  Transmission Date: 20120825
  Serious: Yes (Hospitalization, Other)
  Sender: FDA-Public Use
  Company Number: JP-ASTRAZENECA-2012SE27145

PATIENT
  Age: 29 Year
  Sex: Male

DRUGS (4)
  1. DANTRIUM [Concomitant]
  2. SEROQUEL [Suspect]
     Dosage: 10 DAY DOSES AT ONCE
     Route: 048
  3. RISPERDAL [Concomitant]
  4. SEROQUEL [Suspect]
     Dosage: 100 MG AT 7 TABLETS 1-1-2-3 AND 25 MG 2 TABLETS BEFORE BEDTIME TOTAL DOSE 750 MG DAILY
     Route: 048

REACTIONS (6)
  - NEUROLEPTIC MALIGNANT SYNDROME [None]
  - DEPRESSED LEVEL OF CONSCIOUSNESS [None]
  - HYPOXIC-ISCHAEMIC ENCEPHALOPATHY [None]
  - RENAL DISORDER [None]
  - OVERDOSE [None]
  - BLOOD CREATINE PHOSPHOKINASE INCREASED [None]
